FAERS Safety Report 10594918 (Version 5)
Quarter: 2014Q4

REPORT INFORMATION
  Report Type: Report from Study
  Country: ZA (occurrence: ZA)
  Receive Date: 20141120
  Receipt Date: 20141230
  Transmission Date: 20150529
  Serious: Yes (Life-Threatening, Hospitalization, Disabling, Other)
  Sender: FDA-Public Use
  Company Number: ZA-BIOGENIDEC-2014BI098283

PATIENT
  Age: 53 Year
  Sex: Male

DRUGS (1)
  1. TYSABRI [Suspect]
     Active Substance: NATALIZUMAB
     Indication: MULTIPLE SCLEROSIS
     Dates: start: 20140425, end: 201409

REACTIONS (10)
  - Alanine aminotransferase increased [Unknown]
  - Progressive multifocal leukoencephalopathy [Unknown]
  - Coma [Not Recovered/Not Resolved]
  - Aspartate aminotransferase increased [Unknown]
  - Multiple sclerosis [Not Recovered/Not Resolved]
  - Hypochromic anaemia [Unknown]
  - Gamma-glutamyltransferase increased [Unknown]
  - Hallucination [Unknown]
  - Visual impairment [Not Recovered/Not Resolved]
  - Confusional state [Unknown]

NARRATIVE: CASE EVENT DATE: 201407
